FAERS Safety Report 7059867-3 (Version None)
Quarter: 2010Q4

REPORT INFORMATION
  Report Type: 
  Country: None (occurrence: None)
  Receive Date: 20101025
  Receipt Date: 20101012
  Transmission Date: 20110411
  Serious: Yes (Hospitalization, Other)
  Sender: FDA-Public Use
  Company Number: PHHY2010FR69373

PATIENT
  Sex: Male

DRUGS (8)
  1. EXELON [Suspect]
     Dosage: 4.5 MG, 2 DF QD
     Route: 048
     Dates: end: 20101004
  2. CITALOPRAM HYDROBROMIDE [Suspect]
     Dosage: UNK
     Dates: end: 20101004
  3. MODOPAR [Concomitant]
     Dosage: 50 MG/ 12.5 MG, 3 DF DAILY
  4. TEMESTA [Concomitant]
     Dosage: UNK
  5. ALTEIS [Concomitant]
     Dosage: UNK
  6. PLAVIX [Concomitant]
     Dosage: UNK
  7. NOCTAMID [Concomitant]
     Dosage: UNK
  8. PRAVASTATIN [Concomitant]
     Dosage: UNK
     Dates: end: 20101004

REACTIONS (8)
  - CONVULSION [None]
  - DECUBITUS ULCER [None]
  - DISORIENTATION [None]
  - EXTRAPYRAMIDAL DISORDER [None]
  - HYPONATRAEMIA [None]
  - LOSS OF CONSCIOUSNESS [None]
  - MALAISE [None]
  - MALNUTRITION [None]
